FAERS Safety Report 21369976 (Version 2)
Quarter: 2022Q4

REPORT INFORMATION
  Report Type: Spontaneous
  Country: US (occurrence: US)
  Receive Date: 20220923
  Receipt Date: 20221003
  Transmission Date: 20230113
  Serious: Yes (Hospitalization, Other)
  Sender: FDA-Public Use
  Company Number: US-drreddys-SPO/USA/22/0154805

PATIENT
  Age: 3 Month
  Sex: Male

DRUGS (30)
  1. FENTANYL CITRATE [Suspect]
     Active Substance: FENTANYL CITRATE
     Indication: Analgesic therapy
     Dosage: HIGH-DOSE
  2. FENTANYL CITRATE [Suspect]
     Active Substance: FENTANYL CITRATE
     Indication: Neuromuscular blockade
     Dosage: 30 MCG/KG
     Route: 042
  3. FENTANYL CITRATE [Suspect]
     Active Substance: FENTANYL CITRATE
     Dosage: AT 10:15, 12 MCG GIVEN
     Route: 042
  4. FENTANYL CITRATE [Suspect]
     Active Substance: FENTANYL CITRATE
  5. FENTANYL CITRATE [Suspect]
     Active Substance: FENTANYL CITRATE
     Dosage: AT 12:37
     Route: 042
  6. FENTANYL CITRATE [Suspect]
     Active Substance: FENTANYL CITRATE
  7. FENTANYL CITRATE [Suspect]
     Active Substance: FENTANYL CITRATE
     Dosage: BEGAN WEANING AT 13:03
     Route: 042
  8. FENTANYL CITRATE [Suspect]
     Active Substance: FENTANYL CITRATE
     Dosage: AT 11:49
     Route: 042
  9. FENTANYL CITRATE [Suspect]
     Active Substance: FENTANYL CITRATE
     Route: 042
  10. FENTANYL CITRATE [Suspect]
     Active Substance: FENTANYL CITRATE
     Dosage: AT 10:54
     Route: 042
  11. FENTANYL CITRATE [Suspect]
     Active Substance: FENTANYL CITRATE
     Dosage: AT 13:15
     Route: 042
  12. FENTANYL CITRATE [Suspect]
     Active Substance: FENTANYL CITRATE
  13. FENTANYL CITRATE [Suspect]
     Active Substance: FENTANYL CITRATE
     Dosage: 7.2 MG/KG)
  14. FENTANYL CITRATE [Suspect]
     Active Substance: FENTANYL CITRATE
     Dosage: AT 11:15, 10 MCG GIVEN
     Route: 042
  15. FENTANYL CITRATE [Suspect]
     Active Substance: FENTANYL CITRATE
     Dosage: AT 10:51
     Route: 042
  16. DEXMEDETOMIDINE [Concomitant]
     Active Substance: DEXMEDETOMIDINE
     Indication: Neuromuscular blockade
     Dosage: AT 11:36
     Route: 042
  17. DEXMEDETOMIDINE [Concomitant]
     Active Substance: DEXMEDETOMIDINE
     Dosage: AT 12:37
     Route: 042
  18. DEXMEDETOMIDINE [Concomitant]
     Active Substance: DEXMEDETOMIDINE
     Dosage: 2.8 MCG/KG
     Route: 042
  19. DEXMEDETOMIDINE [Concomitant]
     Active Substance: DEXMEDETOMIDINE
     Dosage: AT 10:15, 1 MCG GIVEN
     Route: 042
  20. DEXMEDETOMIDINE [Concomitant]
     Active Substance: DEXMEDETOMIDINE
     Dosage: BEGAN WEANING AT 13:03
     Route: 042
  21. DEXMEDETOMIDINE [Concomitant]
     Active Substance: DEXMEDETOMIDINE
     Dosage: AT 10:51
     Route: 042
  22. DEXMEDETOMIDINE [Concomitant]
     Active Substance: DEXMEDETOMIDINE
     Dosage: AT 13:15
     Route: 042
  23. SUGAMMADEX [Concomitant]
     Active Substance: SUGAMMADEX
     Indication: Neuromuscular blockade reversal
  24. SEVOFLURANE [Concomitant]
     Active Substance: SEVOFLURANE
     Indication: Induction of anaesthesia
     Dosage: 0.7 DURING PREPARATORY PHASE AT 10:15
  25. SEVOFLURANE [Concomitant]
     Active Substance: SEVOFLURANE
     Dosage: 1.5 AT 13:15
  26. SEVOFLURANE [Concomitant]
     Active Substance: SEVOFLURANE
     Dosage: 1.3 AT 10:51
  27. SEVOFLURANE [Concomitant]
     Active Substance: SEVOFLURANE
     Dosage: 1.5 AT 10:54
  28. SEVOFLURANE [Concomitant]
     Active Substance: SEVOFLURANE
     Dosage: 1.7 AT 10:54
  29. SEVOFLURANE [Concomitant]
     Active Substance: SEVOFLURANE
     Dosage: ABLE TO WEAN TO 1 AT 11:49
  30. SEVOFLURANE [Concomitant]
     Active Substance: SEVOFLURANE
     Dosage: 2 AT 11:36

REACTIONS (4)
  - Agitation [Recovered/Resolved]
  - Hyperaesthesia [Recovered/Resolved]
  - Paradoxical drug reaction [Recovered/Resolved]
  - Crying [Recovered/Resolved]
